FAERS Safety Report 5353062-1 (Version None)
Quarter: 2007Q2

REPORT INFORMATION
  Report Type: 
  Country: None (occurrence: None)
  Receive Date: 20070606
  Receipt Date: 20070521
  Transmission Date: 20071010
  Serious: Yes (Death)
  Sender: FDA-Public Use
  Company Number: URSO-2007-127

PATIENT
  Age: 71 Year
  Sex: Female

DRUGS (7)
  1. URSO 250 [Suspect]
     Indication: HEPATIC FUNCTION ABNORMAL
     Dosage: 300MG ORAL
     Route: 048
     Dates: start: 20070423, end: 20070424
  2. CALONAL (ACETAMINOPHEN) [Suspect]
     Indication: PYREXIA
     Dosage: 400MG ORAL
     Route: 048
     Dates: start: 20070421, end: 20070424
  3. LEVOFLOXACIN [Suspect]
     Indication: INFECTION
     Dosage: 100MG ORAL
     Route: 048
     Dates: start: 20070422, end: 20070424
  4. LECICARBON (SODIUM BICARBONATE, ANHYDROUS MONOBASIC SODIUM PHOSPHATE) [Suspect]
     Indication: CONSTIPATION
     Dosage: 1 DF SUPPOSITORY
     Dates: start: 20070423, end: 20070423
  5. LASIX [Concomitant]
  6. FRANDOL S (SOSORBIDE DINITRATE) [Concomitant]
  7. GASMOTIN (MOSAPRODE CITRATE) [Concomitant]

REACTIONS (8)
  - BLOOD BETA-D-GLUCAN INCREASED [None]
  - BLOOD PRESSURE DECREASED [None]
  - CARDIO-RESPIRATORY ARREST [None]
  - FUNGAL INFECTION [None]
  - HEPATORENAL FAILURE [None]
  - HYPOALBUMINAEMIA [None]
  - HYPOVOLAEMIA [None]
  - STEVENS-JOHNSON SYNDROME [None]
